FAERS Safety Report 16074490 (Version 1)
Quarter: 2019Q1

REPORT INFORMATION
  Report Type: Report from Study
  Country: US (occurrence: US)
  Receive Date: 20190314
  Receipt Date: 20190314
  Transmission Date: 20190418
  Serious: Yes (Hospitalization)
  Sender: FDA-Public Use
  Company Number: US-ACTELION-A-NJ2016-142041

PATIENT
  Age: 81 Year
  Sex: Male
  Weight: 90.7 kg

DRUGS (2)
  1. ADEMPAS [Concomitant]
     Active Substance: RIOCIGUAT
  2. VELETRI [Suspect]
     Active Substance: EPOPROSTENOL
     Indication: PULMONARY HYPERTENSION
     Dosage: 3 NG/KG, PER MIN
     Route: 042
     Dates: start: 20160901

REACTIONS (5)
  - Hospitalisation [Not Recovered/Not Resolved]
  - Diarrhoea [Unknown]
  - Dyspnoea exertional [Not Recovered/Not Resolved]
  - Catheter management [Unknown]
  - Device occlusion [Unknown]

NARRATIVE: CASE EVENT DATE: 201806
